FAERS Safety Report 25374041 (Version 1)
Quarter: 2025Q2

REPORT INFORMATION
  Report Type: Spontaneous
  Country: CA (occurrence: CA)
  Receive Date: 20250529
  Receipt Date: 20250529
  Transmission Date: 20250716
  Serious: Yes (Other)
  Sender: TEVA
  Company Number: CA-TEVA-VS-3334056

PATIENT
  Sex: Male

DRUGS (2)
  1. RISPERIDONE [Suspect]
     Active Substance: RISPERIDONE
     Indication: Tic
     Route: 065
  2. ARIPIPRAZOLE [Suspect]
     Active Substance: ARIPIPRAZOLE
     Indication: Tic
     Route: 065

REACTIONS (4)
  - Impulse-control disorder [Unknown]
  - Weight increased [Unknown]
  - Depression [Unknown]
  - Drug ineffective [Unknown]
